FAERS Safety Report 7238304-X (Version None)
Quarter: 2011Q1

REPORT INFORMATION
  Report Type: 
  Country: None (occurrence: None)
  Receive Date: 20110121
  Receipt Date: 20110107
  Transmission Date: 20110831
  Serious: Yes (Death)
  Sender: FDA-Public Use
  Company Number: US-CELGENEUS-163-20785-10121819

PATIENT
  Sex: Male

DRUGS (9)
  1. LISINOPRIL [Concomitant]
  2. PREDNISONE [Concomitant]
  3. ASPIRIN [Concomitant]
  4. THALIDOMIDE [Suspect]
     Indication: MONOCLONAL GAMMOPATHY
     Route: 048
     Dates: start: 20080731
  5. TOPROL-XL [Concomitant]
  6. SUCRALFATE [Concomitant]
  7. THALIDOMIDE [Suspect]
     Route: 048
     Dates: start: 20090501, end: 20101206
  8. LIPITOR [Concomitant]
  9. ALKERAN [Concomitant]

REACTIONS (1)
  - MYOCARDIAL INFARCTION [None]
